FAERS Safety Report 7084577-6 (Version None)
Quarter: 2010Q4

REPORT INFORMATION
  Report Type: 
  Country: None (occurrence: None)
  Receive Date: 20101104
  Receipt Date: 20101027
  Transmission Date: 20110411
  Serious: Yes (Other)
  Sender: FDA-Public Use
  Company Number: BR-ABBOTT-10P-020-0682025-00

PATIENT
  Sex: Female

DRUGS (5)
  1. DEPAKENE [Suspect]
     Indication: SYNCOPE
     Route: 048
  2. DEPAKENE [Suspect]
     Indication: PROPHYLAXIS
  3. TOPIRAMATE [Concomitant]
     Indication: SYNCOPE
     Route: 048
  4. TOPIRAMATE [Concomitant]
     Indication: PROPHYLAXIS
  5. FOLIC ACID [Concomitant]
     Indication: ANAEMIA PROPHYLAXIS
     Route: 048

REACTIONS (3)
  - AMNESIA [None]
  - DRUG INEFFECTIVE [None]
  - SYNCOPE [None]
